FAERS Safety Report 16649081 (Version 2)
Quarter: 2019Q3

REPORT INFORMATION
  Report Type: Report from Study
  Country: JP (occurrence: JP)
  Receive Date: 20190730
  Receipt Date: 20190806
  Transmission Date: 20191004
  Serious: Yes (Death, Hospitalization)
  Sender: FDA-Public Use
  Company Number: JP-ASTRAZENECA-2019SE73306

PATIENT
  Age: 78 Year
  Sex: Male
  Weight: 52 kg

DRUGS (1)
  1. IMFINZI [Suspect]
     Active Substance: DURVALUMAB
     Indication: NON-SMALL CELL LUNG CANCER
     Route: 041
     Dates: start: 20190418, end: 20190418

REACTIONS (3)
  - Radiation pneumonitis [Fatal]
  - Interstitial lung disease [Fatal]
  - Pneumothorax [Fatal]

NARRATIVE: CASE EVENT DATE: 20190502
